FAERS Safety Report 6936532-1 (Version None)
Quarter: 2010Q3

REPORT INFORMATION
  Report Type: 
  Country: None (occurrence: None)
  Receive Date: 20100823
  Receipt Date: 20100812
  Transmission Date: 20110219
  Serious: No
  Sender: FDA-Public Use
  Company Number: US-PFIZER INC-2010102362

PATIENT
  Sex: Male
  Weight: 99 kg

DRUGS (1)
  1. LIPITOR [Suspect]
     Dosage: 40 MG, DAILY
     Route: 048
     Dates: start: 20100701

REACTIONS (2)
  - CONSTIPATION [None]
  - GASTROINTESTINAL SOUNDS ABNORMAL [None]
